FAERS Safety Report 9172343 (Version 1)
Quarter: 2013Q1

REPORT INFORMATION
  Report Type: Spontaneous
  Country: US (occurrence: US)
  Receive Date: 20130319
  Receipt Date: 20130319
  Transmission Date: 20140127
  Serious: Yes (Death, Other)
  Sender: FDA-Public Use
  Company Number: US-PFIZER INC-2013086657

PATIENT
  Sex: Male

DRUGS (2)
  1. ZITHROMAX [Suspect]
     Indication: BRONCHITIS
     Dosage: UNK
  2. ZITHROMAX [Suspect]
     Indication: MALAISE

REACTIONS (2)
  - Myocardial infarction [Fatal]
  - Intracranial aneurysm [Fatal]
